FAERS Safety Report 23702975 (Version 1)
Quarter: 2024Q2

REPORT INFORMATION
  Report Type: Spontaneous
  Country: US (occurrence: US)
  Receive Date: 20240403
  Receipt Date: 20240403
  Transmission Date: 20240716
  Serious: No
  Sender: FDA-Public Use
  Company Number: US-BoehringerIngelheim-2024-BI-019783

PATIENT
  Age: 52 Year
  Sex: Female

DRUGS (3)
  1. JARDIANCE [Suspect]
     Active Substance: EMPAGLIFLOZIN
     Indication: Type 2 diabetes mellitus
     Dosage: UNKNOWN
  2. MOUNJARO [Suspect]
     Active Substance: TIRZEPATIDE
     Indication: Type 2 diabetes mellitus
     Route: 058
     Dates: start: 202311
  3. GLIPIZIDE [Suspect]
     Active Substance: GLIPIZIDE
     Indication: Type 2 diabetes mellitus

REACTIONS (2)
  - Blood glucose increased [Unknown]
  - Blood glucose decreased [Recovered/Resolved]
